FAERS Safety Report 15127394 (Version 1)
Quarter: 2018Q3

REPORT INFORMATION
  Report Type: Spontaneous
  Country: US (occurrence: US)
  Receive Date: 20180710
  Receipt Date: 20180710
  Transmission Date: 20181010
  Serious: Yes (Hospitalization, Disabling)
  Sender: FDA-Public Use
  Company Number: US-ELI_LILLY_AND_COMPANY-US201807001878

PATIENT
  Age: 50 Year
  Sex: Male
  Weight: 90.7 kg

DRUGS (2)
  1. TRULICITY [Suspect]
     Active Substance: DULAGLUTIDE
     Indication: PRODUCT USED FOR UNKNOWN INDICATION
     Dosage: UNK UNK, UNKNOWN
     Route: 058
  2. INVOKANA [Suspect]
     Active Substance: CANAGLIFLOZIN
     Indication: TYPE 2 DIABETES MELLITUS
     Dosage: 300 MG, DAILY
     Route: 048
     Dates: start: 20140121

REACTIONS (6)
  - Diabetic ketoacidosis [Recovering/Resolving]
  - Necrosis [Recovering/Resolving]
  - Foot amputation [Recovering/Resolving]
  - Diabetic foot [Recovering/Resolving]
  - Cellulitis [Recovering/Resolving]
  - Leg amputation [Recovering/Resolving]

NARRATIVE: CASE EVENT DATE: 201708
